FAERS Safety Report 5800797-X (Version None)
Quarter: 2008Q3

REPORT INFORMATION
  Report Type: 
  Country: None (occurrence: None)
  Receive Date: 20080703
  Receipt Date: 20080626
  Transmission Date: 20090109
  Serious: Yes (Hospitalization)
  Sender: FDA-Public Use
  Company Number: US-MERCK-0806USA08784

PATIENT
  Age: 13 Month
  Sex: Female

DRUGS (3)
  1. DECADRON SRC [Suspect]
     Route: 048
  2. PREDNISOLONE [Concomitant]
     Route: 065
  3. GLOBULIN, IMMUNE [Concomitant]
     Route: 042

REACTIONS (2)
  - DRUG INEFFECTIVE [None]
  - IDIOPATHIC THROMBOCYTOPENIC PURPURA [None]
